FAERS Safety Report 18208017 (Version 1)
Quarter: 2020Q3

REPORT INFORMATION
  Report Type: Report from Study
  Country: DE (occurrence: DE)
  Receive Date: 20200828
  Receipt Date: 20200828
  Transmission Date: 20201103
  Serious: Yes (Hospitalization)
  Sender: FDA-Public Use
  Company Number: DE-MYLANLABS-2020M1073412

PATIENT
  Age: 80 Year
  Sex: Female

DRUGS (3)
  1. OLUMIANT [Concomitant]
     Active Substance: BARICITINIB
     Dosage: 2 MILLIGRAM, QD
     Dates: end: 20200331
  2. OLUMIANT [Concomitant]
     Active Substance: BARICITINIB
     Dosage: 2 MILLIGRAM, QD
     Dates: start: 20200703
  3. HULIO [Suspect]
     Active Substance: ADALIMUMAB-FKJP
     Indication: PRODUCT USED FOR UNKNOWN INDICATION
     Dosage: 40 MILLIGRAM, EVERY TWO WEEKS
     Dates: start: 20200411, end: 20200517

REACTIONS (1)
  - Tenosynovitis [Recovered/Resolved]
